FAERS Safety Report 8050390-6 (Version None)
Quarter: 2012Q1

REPORT INFORMATION
  Report Type: 
  Country: None (occurrence: None)
  Receive Date: 20120117
  Receipt Date: 20120110
  Transmission Date: 20120608
  Serious: Yes (Hospitalization)
  Sender: FDA-Public Use
  Company Number: AU-PURDUE-USA-2012-0080865

PATIENT
  Sex: Male
  Weight: 107 kg

DRUGS (5)
  1. BUPRENORPHINE [Suspect]
     Indication: PAIN
     Dosage: 40 MCG, Q1H
     Route: 062
     Dates: start: 20111115
  2. BUPRENORPHINE [Suspect]
     Dosage: 10 MCG, Q1H
     Route: 062
     Dates: start: 20111028, end: 20111103
  3. BUPRENORPHINE [Suspect]
     Dosage: 20 MCG, Q1H
     Route: 062
     Dates: start: 20111103, end: 20111108
  4. BUPRENORPHINE [Suspect]
     Dosage: 30 MCG, Q1H
     Route: 062
     Dates: start: 20111108, end: 20111115
  5. BUPRENORPHINE [Suspect]
     Dosage: 5 MCG, Q1H
     Route: 062
     Dates: start: 20111018, end: 20111028

REACTIONS (1)
  - ANGINA UNSTABLE [None]
